FAERS Safety Report 18878956 (Version 8)
Quarter: 2021Q4

REPORT INFORMATION
  Report Type: Report from Study
  Country: US (occurrence: US)
  Receive Date: 20210211
  Receipt Date: 20211229
  Transmission Date: 20220304
  Serious: Yes (Hospitalization)
  Sender: FDA-Public Use
  Company Number: NVSC2021US031960

PATIENT
  Age: 65 Year
  Sex: Female
  Weight: 63 kg

DRUGS (15)
  1. SPARTALIZUMAB [Suspect]
     Active Substance: SPARTALIZUMAB
     Indication: Pancreatic carcinoma
     Dosage: 400 MG, Q4W
     Route: 042
     Dates: start: 20201109
  2. ILARIS [Suspect]
     Active Substance: CANAKINUMAB
     Indication: Pancreatic carcinoma
     Dosage: 250 MG, Q4W
     Route: 058
     Dates: start: 20201109, end: 20210105
  3. ILARIS [Suspect]
     Active Substance: CANAKINUMAB
     Dosage: UNK
     Route: 058
     Dates: start: 20210217
  4. PACLITAXEL [Suspect]
     Active Substance: PACLITAXEL
     Indication: Pancreatic carcinoma
     Dosage: 168 MG, Q3W (1, 8, 15)
     Route: 042
     Dates: start: 20201109, end: 20210119
  5. PACLITAXEL [Suspect]
     Active Substance: PACLITAXEL
     Dosage: UNK
     Route: 042
     Dates: start: 20210217
  6. GEMCITABINE [Suspect]
     Active Substance: GEMCITABINE
     Indication: Pancreatic carcinoma
     Dosage: 1344 MG (1,8,15)
     Route: 042
     Dates: start: 20201109, end: 20210119
  7. GEMCITABINE [Suspect]
     Active Substance: GEMCITABINE
     Dosage: UNK
     Route: 042
     Dates: start: 20210217
  8. ATORVASTATIN [Concomitant]
     Active Substance: ATORVASTATIN
     Indication: Prophylaxis
     Dosage: 0.25 MG, TID (PRN)
     Route: 048
     Dates: start: 20150101
  9. GLIPIZIDE [Concomitant]
     Active Substance: GLIPIZIDE
     Indication: Diabetes prophylaxis
     Dosage: 10 MG, QD
     Route: 048
     Dates: start: 20191101
  10. METFORMIN [Concomitant]
     Active Substance: METFORMIN HYDROCHLORIDE
     Indication: Diabetes prophylaxis
     Dosage: 1000 MG, QD
     Route: 048
     Dates: start: 20191101
  11. LEVOTHYROXINE [Concomitant]
     Active Substance: LEVOTHYROXINE
     Indication: Prophylaxis
     Dosage: 175 MCG, QD
     Route: 048
     Dates: start: 20180101
  12. LOSARTAN [Concomitant]
     Active Substance: LOSARTAN
     Indication: Hypertension
     Dosage: 100 MG, QD
     Route: 048
     Dates: start: 20200101
  13. OXYCODONE [Concomitant]
     Active Substance: OXYCODONE
     Indication: Breakthrough pain
     Dosage: 5 MG, Q6H (PRN)
     Route: 048
     Dates: start: 20201029
  14. VITAMINS [Concomitant]
     Active Substance: VITAMINS
     Indication: Fatigue
     Dosage: 1 DF, QD
     Route: 048
     Dates: start: 20010112
  15. INSULIN NOS [Concomitant]
     Active Substance: INSULIN NOS
     Indication: Product used for unknown indication
     Dosage: UNK
     Route: 065
     Dates: start: 20210210

REACTIONS (1)
  - Pneumonitis [Recovered/Resolved with Sequelae]

NARRATIVE: CASE EVENT DATE: 20210204
